FAERS Safety Report 13111745 (Version 1)
Quarter: 2017Q1

REPORT INFORMATION
  Report Type: Report from Study
  Country: US (occurrence: US)
  Receive Date: 20170113
  Receipt Date: 20170113
  Transmission Date: 20170428
  Serious: Yes (Other)
  Sender: FDA-Public Use
  Company Number: US-ROCHE-1878461

PATIENT
  Age: 44 Year
  Sex: Female
  Weight: 68.1 kg

DRUGS (2)
  1. SINGULAIR [Concomitant]
     Active Substance: MONTELUKAST SODIUM
     Indication: ASTHMA
     Dosage: YES
     Route: 048
  2. XOLAIR [Suspect]
     Active Substance: OMALIZUMAB
     Indication: BLOOD IMMUNOGLOBULIN E INCREASED
     Dosage: ONE SHOT EVERY TWO WEEKS DOSE UNKNOWN ;ONGOING: YES
     Route: 058

REACTIONS (3)
  - Seizure [Recovered/Resolved]
  - Malaise [Recovered/Resolved]
  - Ankle fracture [Recovered/Resolved]

NARRATIVE: CASE EVENT DATE: 201609
